FAERS Safety Report 22167008 (Version 1)
Quarter: 2023Q2

REPORT INFORMATION
  Report Type: Spontaneous
  Country: US (occurrence: None)
  Receive Date: 20230402
  Receipt Date: 20230402
  Transmission Date: 20230722
  Serious: Yes (Other)
  Sender: FDA-Public Use
  Company Number: None

PATIENT
  Age: 49 Year
  Sex: Male
  Weight: 96.75 kg

DRUGS (2)
  1. SAXENDA [Suspect]
     Active Substance: LIRAGLUTIDE
     Dates: start: 20230301
  2. Tadafanil [Concomitant]

REACTIONS (2)
  - Hypoglycaemia [None]
  - Headache [None]

NARRATIVE: CASE EVENT DATE: 20230401
